FAERS Safety Report 6076594-X (Version None)
Quarter: 2009Q1

REPORT INFORMATION
  Report Type: 
  Country: None (occurrence: None)
  Receive Date: 20090212
  Receipt Date: 20090212
  Transmission Date: 20090719
  Serious: Yes (Hospitalization)
  Sender: FDA-Public Use
  Company Number: None

PATIENT
  Age: 60 Year
  Sex: Male
  Weight: 59.55 kg

DRUGS (1)
  1. EMTRICITABINE/TENOFOVIR [Suspect]
     Dosage: TAB EVERY DAY PO
     Route: 048
     Dates: start: 20080108, end: 20080108

REACTIONS (2)
  - DYSPNOEA [None]
  - RENAL FAILURE ACUTE [None]
